FAERS Safety Report 5839581-X (Version None)
Quarter: 2008Q3

REPORT INFORMATION
  Report Type: 
  Country: None (occurrence: None)
  Receive Date: 20080811
  Receipt Date: 20080626
  Transmission Date: 20090109
  Serious: No
  Sender: FDA-Public Use
  Company Number: A0734988A

PATIENT
  Sex: Female

DRUGS (3)
  1. TREXIMET [Suspect]
     Route: 048
     Dates: start: 20080625
  2. ADVIL [Concomitant]
  3. BIRTH CONTROL PILLS [Concomitant]

REACTIONS (4)
  - HYPERHIDROSIS [None]
  - PAIN [None]
  - PARAESTHESIA [None]
  - PARAESTHESIA ORAL [None]
